FAERS Safety Report 13589591 (Version 4)
Quarter: 2017Q2

REPORT INFORMATION
  Report Type: Report from Study
  Country: US (occurrence: US)
  Receive Date: 20170530
  Receipt Date: 20170629
  Transmission Date: 20170830
  Serious: Yes (Hospitalization, Other)
  Sender: FDA-Public Use
  Company Number: US-JNJFOC-20170221915

PATIENT
  Age: 74 Year
  Sex: Male
  Weight: 57 kg

DRUGS (13)
  1. POTASSIUM [Concomitant]
     Active Substance: POTASSIUM
     Route: 048
  2. ALDACTONE [Concomitant]
     Active Substance: SPIRONOLACTONE
  3. CARVEDILOL. [Concomitant]
     Active Substance: CARVEDILOL
     Route: 048
  4. IMBRUVICA [Suspect]
     Active Substance: IBRUTINIB
     Indication: WALDENSTROM^S MACROGLOBULINAEMIA
     Route: 048
     Dates: start: 20170215
  5. FUROSEMIDE. [Concomitant]
     Active Substance: FUROSEMIDE
     Route: 048
  6. METOLAZONE. [Concomitant]
     Active Substance: METOLAZONE
  7. CLOPIDOGREL [Concomitant]
     Active Substance: CLOPIDOGREL BISULFATE
     Route: 048
  8. IMBRUVICA [Suspect]
     Active Substance: IBRUTINIB
     Indication: WALDENSTROM^S MACROGLOBULINAEMIA
     Route: 048
     Dates: start: 20170130, end: 2017
  9. PANTOPRAZOLE SODIUM. [Concomitant]
     Active Substance: PANTOPRAZOLE SODIUM
     Route: 048
  10. PRAVASTATIN. [Concomitant]
     Active Substance: PRAVASTATIN
     Route: 048
  11. IMBRUVICA [Suspect]
     Active Substance: IBRUTINIB
     Indication: WALDENSTROM^S MACROGLOBULINAEMIA
     Route: 048
     Dates: start: 20170328
  12. IMBRUVICA [Suspect]
     Active Substance: IBRUTINIB
     Indication: WALDENSTROM^S MACROGLOBULINAEMIA
     Route: 048
     Dates: start: 20170214
  13. SALBUTAMOL [Concomitant]
     Active Substance: ALBUTEROL
     Dosage: 90 MCG

REACTIONS (13)
  - Fatigue [Not Recovered/Not Resolved]
  - Emphysema [Unknown]
  - Lymphadenopathy mediastinal [Unknown]
  - Alanine aminotransferase decreased [Unknown]
  - Blood sodium decreased [Unknown]
  - Pleural effusion [Recovering/Resolving]
  - Lymphocyte count decreased [Unknown]
  - Blood chloride decreased [Recovering/Resolving]
  - Cardiac failure congestive [Recovering/Resolving]
  - Cardiomegaly [Unknown]
  - Anaemia [Recovering/Resolving]
  - Pulmonary embolism [Recovering/Resolving]
  - Neutrophil count increased [Recovering/Resolving]

NARRATIVE: CASE EVENT DATE: 20170220
